FAERS Safety Report 8804533 (Version 1)
Quarter: 2012Q4

REPORT INFORMATION
  Report Type: 
  Country: DE (occurrence: DE)
  Receive Date: 20120924
  Receipt Date: 20120924
  Transmission Date: 20130627
  Serious: Yes (Disabling)
  Sender: FDA-Public Use
  Company Number: DE-TEVA-359894USA

PATIENT
  Age: 64 Year
  Sex: Male

DRUGS (2)
  1. TREANDA [Suspect]
     Indication: NEOPLASM
     Dosage: Unknown
     Route: 042
  2. RITUXIMAB [Suspect]
     Indication: NEOPLASM

REACTIONS (1)
  - Deafness [Unknown]
